FAERS Safety Report 6764359-2 (Version None)
Quarter: 2010Q2

REPORT INFORMATION
  Report Type: 
  Country: None (occurrence: None)
  Receive Date: 20100610
  Receipt Date: 20100602
  Transmission Date: 20101027
  Serious: Yes (Other)
  Sender: FDA-Public Use
  Company Number: CN-PFIZER INC-2010069148

PATIENT
  Age: 40 Year
  Sex: Female

DRUGS (5)
  1. AMLODIPINE BESYLATE [Suspect]
     Indication: HYPERTENSION
     Dosage: 2.5 MG, 1X/DAY
     Route: 048
  2. AMLODIPINE BESYLATE [Suspect]
     Dosage: 2.5 MG, 2X/DAY
     Route: 048
  3. MAGNESIUM SULFATE [Suspect]
     Dosage: 2 G (LOADING DOSE)
     Route: 042
  4. MAGNESIUM SULFATE [Suspect]
     Dosage: 10 G/DAY (TRANSFUSED IN 10 H)
     Route: 042
  5. LABETALOL [Concomitant]
     Indication: HYPERTENSION

REACTIONS (2)
  - DRUG INTERACTION [None]
  - NEUROMUSCULAR BLOCKADE [None]
